FAERS Safety Report 12470924 (Version 1)
Quarter: 2016Q2

REPORT INFORMATION
  Report Type: Spontaneous
  Country: US (occurrence: None)
  Receive Date: 20160615
  Receipt Date: 20160615
  Transmission Date: 20160815
  Serious: No
  Sender: FDA-Public Use
  Company Number: None

PATIENT

DRUGS (2)
  1. METHOTREXATE TABLETS METHOTREXATE [Suspect]
     Active Substance: METHOTREXATE
     Route: 048
  2. METOLAZONE METOLAZONE [Suspect]
     Active Substance: METOLAZONE
     Route: 048

REACTIONS (4)
  - Mouth ulceration [None]
  - Oral mucosal blistering [None]
  - Drug dispensing error [None]
  - Wrong drug administered [None]
